FAERS Safety Report 23359595 (Version 1)
Quarter: 2024Q1

REPORT INFORMATION
  Report Type: Other
  Country: US (occurrence: US)
  Receive Date: 20240103
  Receipt Date: 20240103
  Transmission Date: 20240410
  Serious: No
  Sender: FDA-Public Use
  Company Number: US-APOTEX-2023AP016948

PATIENT
  Age: 0 Year
  Sex: Female
  Weight: 2.11 kg

DRUGS (10)
  1. EMTRICITABINE\TENOFOVIR [Suspect]
     Active Substance: EMTRICITABINE\TENOFOVIR
     Indication: Antiretroviral therapy
     Dosage: TOTAL DAILY DOSE: 1 (UNIT UNKNOWN)
     Route: 064
     Dates: start: 2022
  2. COBICISTAT\ELVITEGRAVIR\EMTRICITABINE\TENOFOVIR ALAFENAMIDE FUMARATE [Suspect]
     Active Substance: COBICISTAT\ELVITEGRAVIR\EMTRICITABINE\TENOFOVIR ALAFENAMIDE FUMARATE
     Indication: Antiretroviral therapy
     Dosage: TOTAL DAILY DOSE: 1 (UNIT UNKNOWN)
     Route: 064
     Dates: start: 2022, end: 202210
  3. DARUNAVIR [Suspect]
     Active Substance: DARUNAVIR
     Indication: Antiretroviral therapy
     Dosage: TOTAL DAILY DOSE: 800 (UNIT UNKNOWN)
     Route: 064
     Dates: start: 202210, end: 202211
  4. DARUNAVIR [Suspect]
     Active Substance: DARUNAVIR
     Dosage: TOTAL DAILY DOSE: 1200 (UNIT UNKNOWN)
     Route: 064
     Dates: start: 202211, end: 202303
  5. DARUNAVIR [Suspect]
     Active Substance: DARUNAVIR
     Dosage: TOTAL DAILY DOSE: 800 (UNIT UNKNOWN)
     Route: 064
     Dates: start: 202303
  6. DOLUTEGRAVIR [Suspect]
     Active Substance: DOLUTEGRAVIR
     Indication: Antiretroviral therapy
     Dosage: TOTAL DAILY DOSE: 100 (UNIT UNKNOWN)
     Route: 064
     Dates: start: 202210, end: 202303
  7. RITONAVIR [Suspect]
     Active Substance: RITONAVIR
     Indication: Antiretroviral therapy
     Dosage: TOTAL DAILY DOSE: 100 (UNIT UNKNOWN)
     Route: 064
     Dates: start: 202210, end: 202211
  8. RITONAVIR [Suspect]
     Active Substance: RITONAVIR
     Dosage: TOTAL DAILY DOSE: 200 (UNIT UNKNOWN)
     Route: 064
     Dates: start: 202211, end: 202303
  9. RITONAVIR [Suspect]
     Active Substance: RITONAVIR
     Dosage: TOTAL DAILY DOSE: 100 (UNIT UNKNOWN)
     Route: 064
     Dates: start: 202303
  10. ABACAVIR SULFATE\DOLUTEGRAVIR SODIUM\LAMIVUDINE [Suspect]
     Active Substance: ABACAVIR SULFATE\DOLUTEGRAVIR SODIUM\LAMIVUDINE
     Indication: Antiretroviral therapy
     Dosage: TOTAL DAILY DOSE: 1 (UNIT UNKNOWN)
     Route: 064
     Dates: start: 202303

REACTIONS (3)
  - Premature baby [Unknown]
  - Low birth weight baby [Unknown]
  - Foetal exposure during pregnancy [Unknown]

NARRATIVE: CASE EVENT DATE: 20221001
